FAERS Safety Report 5138750-4 (Version None)
Quarter: 2006Q4

REPORT INFORMATION
  Report Type: 
  Country: None (occurrence: None)
  Receive Date: 20061030
  Receipt Date: 20061018
  Transmission Date: 20070319
  Serious: Yes (Life-Threatening)
  Sender: FDA-Public Use
  Company Number: JP-ROCHE-468284

PATIENT
  Age: 6 Year
  Sex: Female

DRUGS (1)
  1. ROCEPHIN [Suspect]
     Indication: PROPHYLAXIS
     Dosage: ROUTE REPORTED AS INTRAVENOUS (NOT OTHERWISE SPECIFIED).
     Route: 042
     Dates: start: 20040803, end: 20040803

REACTIONS (2)
  - ACUTE RESPIRATORY DISTRESS SYNDROME [None]
  - INTERSTITIAL LUNG DISEASE [None]
